FAERS Safety Report 8861554 (Version 1)
Quarter: 2012Q4

REPORT INFORMATION
  Report Type: Spontaneous
  Country: US (occurrence: None)
  Receive Date: 20121022
  Receipt Date: 20121022
  Transmission Date: 20130627
  Serious: Yes (Hospitalization)
  Sender: FDA-Public Use
  Company Number: JPI-P-025568

PATIENT
  Age: 69 Year
  Sex: Male

DRUGS (5)
  1. XYREM [Suspect]
     Indication: INSOMNIA
     Route: 048
     Dates: start: 20041117
  2. XYREM [Suspect]
     Indication: INSOMNIA
     Route: 048
  3. XYREM [Suspect]
     Indication: INSOMNIA
  4. XYREM [Suspect]
     Indication: INSOMNIA
     Route: 048
  5. XYREM [Suspect]
     Indication: INSOMNIA

REACTIONS (12)
  - White blood cell count increased [None]
  - Viral infection [None]
  - Incoherent [None]
  - Dyspnoea [None]
  - Agitation [None]
  - Decubitus ulcer [None]
  - Somnambulism [None]
  - Fall [None]
  - Surgery [None]
  - Stent placement [None]
  - Arterial occlusive disease [None]
  - Initial insomnia [None]
